FAERS Safety Report 23497613 (Version 2)
Quarter: 2024Q1

REPORT INFORMATION
  Report Type: Spontaneous
  Country: US (occurrence: US)
  Receive Date: 20240208
  Receipt Date: 20240216
  Transmission Date: 20240410
  Serious: No
  Sender: FDA-Public Use
  Company Number: US-VERTEX PHARMACEUTICALS-2024-001725

PATIENT
  Age: 40 Year
  Sex: Female
  Weight: 109 kg

DRUGS (3)
  1. TRIKAFTA [Suspect]
     Active Substance: ELEXACAFTOR\IVACAFTOR\TEZACAFTOR
     Indication: Cystic fibrosis
     Dosage: UNKNOWN DOSAGE REGIMEN
     Route: 048
     Dates: start: 202002
  2. ZENPEP [Concomitant]
     Active Substance: PANCRELIPASE AMYLASE\PANCRELIPASE LIPASE\PANCRELIPASE PROTEASE
     Dosage: UNKNOWN DOSE
  3. ZENPEP [Concomitant]
     Active Substance: PANCRELIPASE AMYLASE\PANCRELIPASE LIPASE\PANCRELIPASE PROTEASE
     Dosage: LOWER DOSE

REACTIONS (9)
  - Gait disturbance [Unknown]
  - Overweight [Unknown]
  - Colonoscopy [Unknown]
  - Procedural pain [Unknown]
  - Flatulence [Unknown]
  - Haemorrhoids [Not Recovered/Not Resolved]
  - Anxiety [Unknown]
  - Constipation [Not Recovered/Not Resolved]
  - Anal fissure [Unknown]

NARRATIVE: CASE EVENT DATE: 20220101
